FAERS Safety Report 5992988-2 (Version None)
Quarter: 2008Q4

REPORT INFORMATION
  Report Type: 
  Country: None (occurrence: None)
  Receive Date: 20081212
  Receipt Date: 20080530
  Transmission Date: 20090506
  Serious: No
  Sender: FDA-Public Use
  Company Number: US-AMGEN-KDL283869

PATIENT
  Sex: Female

DRUGS (3)
  1. ENBREL [Suspect]
     Indication: RHEUMATOID ARTHRITIS
     Route: 058
     Dates: start: 20080327
  2. PLAQUENIL [Concomitant]
  3. METHOTREXATE [Concomitant]
     Route: 048

REACTIONS (5)
  - LACRIMATION INCREASED [None]
  - NASAL CONGESTION [None]
  - OROPHARYNGEAL PAIN [None]
  - RESPIRATORY TRACT CONGESTION [None]
  - RHINORRHOEA [None]
